FAERS Safety Report 5432242-0 (Version None)
Quarter: 2007Q3

REPORT INFORMATION
  Report Type: 
  Country: None (occurrence: None)
  Receive Date: 20070830
  Receipt Date: 20070819
  Transmission Date: 20080115
  Serious: Yes (Hospitalization, Other)
  Sender: FDA-Public Use
  Company Number: US-PFIZER INC-2007069532

PATIENT
  Age: 59 Year
  Sex: Female

DRUGS (3)
  1. CHANTIX [Suspect]
     Indication: SMOKING CESSATION THERAPY
     Route: 048
     Dates: start: 20070720, end: 20070803
  2. DRUG, UNSPECIFIED [Interacting]
  3. LOTREL [Concomitant]

REACTIONS (5)
  - ABDOMINAL PAIN UPPER [None]
  - DRUG INTERACTION [None]
  - MALAISE [None]
  - SURGERY [None]
  - VOMITING [None]
